FAERS Safety Report 7027314-3 (Version None)
Quarter: 2010Q4

REPORT INFORMATION
  Report Type: 
  Country: None (occurrence: None)
  Receive Date: 20101004
  Receipt Date: 20100916
  Transmission Date: 20110411
  Serious: Yes (Hospitalization, Other)
  Sender: FDA-Public Use
  Company Number: PHEH2007US08935

PATIENT
  Sex: Female

DRUGS (16)
  1. AREDIA [Suspect]
     Indication: MULTIPLE MYELOMA
     Dosage: UNK
     Route: 042
  2. CAMPATH [Suspect]
     Dosage: UNK
     Dates: end: 20040927
  3. MEVACOR [Concomitant]
     Indication: BLOOD CHOLESTEROL
  4. DARVOCET-N 100 [Concomitant]
  5. TYLENOL [Concomitant]
  6. NEURONTIN [Concomitant]
  7. CHEMOTHERAPEUTICS NOS [Concomitant]
     Indication: NEOPLASM MALIGNANT
  8. PROCRIT                            /00909301/ [Concomitant]
  9. PERIDEX [Concomitant]
     Dosage: 10 CC
  10. MS CONTIN [Concomitant]
  11. PREDNISONE [Concomitant]
     Dosage: UNK
     Route: 048
  12. SOLU-MEDROL [Concomitant]
     Dosage: 100 UNK, QD
  13. ASPIRIN [Concomitant]
  14. CALCIUM [Concomitant]
  15. MAGNESIUM [Concomitant]
  16. AUGMENTIN '125' [Concomitant]

REACTIONS (31)
  - ABDOMINAL PAIN [None]
  - ABSCESS [None]
  - ABSCESS DRAINAGE [None]
  - ANAEMIA [None]
  - ANXIETY [None]
  - BONE DISORDER [None]
  - BREAST PAIN [None]
  - CELLULITIS [None]
  - CHOLECYSTECTOMY [None]
  - CHOLELITHIASIS [None]
  - CLAVICLE FRACTURE [None]
  - CONFUSIONAL STATE [None]
  - DECREASED INTEREST [None]
  - DEFORMITY [None]
  - DISCOMFORT [None]
  - EMOTIONAL DISTRESS [None]
  - FALL [None]
  - HALLUCINATION [None]
  - HYPOPHAGIA [None]
  - IMPAIRED HEALING [None]
  - INFECTION [None]
  - JAW OPERATION [None]
  - NAUSEA [None]
  - OSTEOMYELITIS [None]
  - OSTEONECROSIS OF JAW [None]
  - PAIN [None]
  - PAIN IN JAW [None]
  - RIB FRACTURE [None]
  - SKIN REACTION [None]
  - SWELLING [None]
  - TOOTH EXTRACTION [None]
